FAERS Safety Report 15964461 (Version 4)
Quarter: 2020Q2

REPORT INFORMATION
  Report Type: Report from Study
  Country: BR (occurrence: BR)
  Receive Date: 20190215
  Receipt Date: 20200515
  Transmission Date: 20200713
  Serious: Yes (Life-Threatening, Hospitalization)
  Sender: FDA-Public Use
  Company Number: BR-ROCHE-2262464

PATIENT
  Age: 39 Year
  Sex: Female
  Weight: 75 kg

DRUGS (3)
  1. FEXOFENADINE [Suspect]
     Active Substance: FEXOFENADINE HYDROCHLORIDE
     Indication: URTICARIA
     Route: 065
  2. XOLAIR [Suspect]
     Active Substance: OMALIZUMAB
     Indication: URTICARIA
     Route: 058
     Dates: start: 20180802
  3. XOLAIR [Suspect]
     Active Substance: OMALIZUMAB
     Route: 058
     Dates: start: 20180918

REACTIONS (28)
  - Blister [Recovering/Resolving]
  - Nasopharyngitis [Recovered/Resolved]
  - Pruritus [Recovering/Resolving]
  - Rash [Recovering/Resolving]
  - Swelling [Not Recovered/Not Resolved]
  - Erythema [Recovering/Resolving]
  - Angioedema [Not Recovered/Not Resolved]
  - Allergy to chemicals [Unknown]
  - Amnesia [Not Recovered/Not Resolved]
  - Lip swelling [Recovering/Resolving]
  - Nervousness [Recovering/Resolving]
  - Eye swelling [Unknown]
  - Rhinorrhoea [Recovered/Resolved]
  - Pain [Unknown]
  - Laryngospasm [Not Recovered/Not Resolved]
  - Urticaria [Not Recovered/Not Resolved]
  - Swollen tongue [Unknown]
  - Oedema [Recovering/Resolving]
  - Swelling face [Unknown]
  - Oral herpes [Recovered/Resolved]
  - Fatigue [Not Recovered/Not Resolved]
  - Heart rate increased [Not Recovered/Not Resolved]
  - Skin lesion [Unknown]
  - Anxiety [Unknown]
  - Malaise [Unknown]
  - Herpes virus infection [Recovered/Resolved]
  - Confusional state [Not Recovered/Not Resolved]
  - Fluid retention [Not Recovered/Not Resolved]

NARRATIVE: CASE EVENT DATE: 201809
